FAERS Safety Report 4732759-8 (Version None)
Quarter: 2005Q3

REPORT INFORMATION
  Report Type: 
  Country: None (occurrence: None)
  Receive Date: 20050803
  Receipt Date: 20050415
  Transmission Date: 20060218
  Serious: Yes (Hospitalization)
  Sender: FDA-Public Use
  Company Number: FR-GLAXOSMITHKLINE-B0378479A

PATIENT
  Age: 73 Year
  Sex: Male

DRUGS (3)
  1. AUGMENTIN '125' [Suspect]
     Route: 048
     Dates: end: 20050124
  2. ATARAX [Suspect]
     Dosage: 200MG PER DAY
     Route: 048
     Dates: start: 20041217, end: 20050316
  3. NEXIUM [Suspect]
     Route: 048
     Dates: start: 20041224, end: 20050316

REACTIONS (10)
  - ASCITES [None]
  - BLOOD ALKALINE PHOSPHATASE INCREASED [None]
  - CHOLESTASIS [None]
  - EOSINOPHIL COUNT INCREASED [None]
  - HEPATIC FAILURE [None]
  - HEPATIC NECROSIS [None]
  - HYPERBILIRUBINAEMIA [None]
  - JAUNDICE [None]
  - PROTHROMBIN TIME RATIO INCREASED [None]
  - TRANSAMINASES INCREASED [None]
